FAERS Safety Report 19584594 (Version 1)
Quarter: 2021Q3

REPORT INFORMATION
  Report Type: Spontaneous
  Country: JP (occurrence: JP)
  Receive Date: 20210720
  Receipt Date: 20210720
  Transmission Date: 20211014
  Serious: Yes (Other)
  Sender: FDA-Public Use
  Company Number: JP-PFIZER INC-2021858370

PATIENT

DRUGS (1)
  1. IBRANCE [Suspect]
     Active Substance: PALBOCICLIB
     Indication: BREAST CANCER
     Dosage: 2 WEEKS OF ADMINISTRATION, 2 WEEKS OF WITHDRAWAL

REACTIONS (2)
  - Myelosuppression [Unknown]
  - Neutropenia [Unknown]
